FAERS Safety Report 18441936 (Version 2)
Quarter: 2020Q4

REPORT INFORMATION
  Report Type: Spontaneous
  Country: US (occurrence: US)
  Receive Date: 20201029
  Receipt Date: 20201230
  Transmission Date: 20210114
  Serious: Yes (Other)
  Sender: FDA-Public Use
  Company Number: US-JNJFOC-20201029850

PATIENT
  Age: 58 Year
  Sex: Female
  Weight: 68.5 kg

DRUGS (2)
  1. USTEKINUMAB [Suspect]
     Active Substance: USTEKINUMAB
     Indication: CROHN^S DISEASE
     Route: 042
     Dates: start: 2017, end: 2018
  2. USTEKINUMAB [Suspect]
     Active Substance: USTEKINUMAB
     Route: 042

REACTIONS (3)
  - Crohn^s disease [Unknown]
  - Infusion related reaction [Recovered/Resolved]
  - Urticaria [Recovered/Resolved]

NARRATIVE: CASE EVENT DATE: 20200903
